FAERS Safety Report 11175314 (Version 13)
Quarter: 2018Q2

REPORT INFORMATION
  Report Type: Spontaneous
  Country: ES (occurrence: ES)
  Receive Date: 20150609
  Receipt Date: 20180510
  Transmission Date: 20180711
  Serious: Yes (Hospitalization, Other)
  Sender: FDA-Public Use
  Company Number: PHHY2015ES064759

PATIENT
  Age: 54 Year
  Sex: Male

DRUGS (4)
  1. LIVAZO [Concomitant]
     Active Substance: PITAVASTATIN CALCIUM
     Indication: PRODUCT USED FOR UNKNOWN INDICATION
     Dosage: UNK UNK, QD
     Route: 065
     Dates: start: 20150317
  2. GILENYA [Suspect]
     Active Substance: FINGOLIMOD HYDROCHLORIDE
     Indication: MULTIPLE SCLEROSIS
     Dosage: 0.5 MG, QD
     Route: 065
     Dates: start: 20121109, end: 20150527
  3. CLAVERSAL [Concomitant]
     Active Substance: MESALAMINE
     Indication: COLITIS ULCERATIVE
     Dosage: 500 MG, TID (FOR THE FIRST 6 MONTHS)
     Route: 048
     Dates: start: 20110226
  4. CLAVERSAL [Concomitant]
     Active Substance: MESALAMINE
     Dosage: 500 MG, BID (SINCE THE FIRST 6 MONTHS UNTIL NOW)
     Route: 048
     Dates: end: 20150614

REACTIONS (25)
  - Progressive multifocal leukoencephalopathy [Recovering/Resolving]
  - Cognitive disorder [Recovering/Resolving]
  - Fatigue [Recovering/Resolving]
  - Bradyphrenia [Recovering/Resolving]
  - Hemiparesis [Recovering/Resolving]
  - Urinary tract infection [Unknown]
  - Motor dysfunction [Recovering/Resolving]
  - White blood cell count decreased [Not Recovered/Not Resolved]
  - Irritability [Recovering/Resolving]
  - JC polyomavirus test positive [Unknown]
  - Choreoathetosis [Recovering/Resolving]
  - Somnolence [Recovering/Resolving]
  - Blood immunoglobulin M decreased [Unknown]
  - Gait disturbance [Recovering/Resolving]
  - Muscle atrophy [Recovering/Resolving]
  - Disturbance in attention [Recovering/Resolving]
  - Choking [Recovering/Resolving]
  - Lymphocyte count decreased [Not Recovered/Not Resolved]
  - Pyrexia [Unknown]
  - Vomiting [Unknown]
  - Apathy [Recovering/Resolving]
  - Stereotypy [Recovering/Resolving]
  - Asthenia [Recovering/Resolving]
  - Blood immunoglobulin G decreased [Unknown]
  - Abnormal behaviour [Unknown]

NARRATIVE: CASE EVENT DATE: 20121210
